FAERS Safety Report 5578782-5 (Version None)
Quarter: 2008Q1

REPORT INFORMATION
  Report Type: 
  Country: None (occurrence: None)
  Receive Date: 20080102
  Receipt Date: 20071220
  Transmission Date: 20080703
  Serious: Yes (Hospitalization)
  Sender: FDA-Public Use
  Company Number: NO-TEVA-164492ISR

PATIENT
  Age: 65 Year
  Sex: Female

DRUGS (3)
  1. METHOTREXATE [Suspect]
     Indication: RHEUMATOID ARTHRITIS
     Dates: start: 20070308, end: 20070801
  2. ETANERCEPT [Suspect]
     Indication: RHEUMATOID ARTHRITIS
     Route: 058
     Dates: start: 20070501, end: 20070801
  3. ETANERCEPT [Suspect]
     Route: 058
     Dates: start: 20071101

REACTIONS (3)
  - DIABETES MELLITUS [None]
  - HEPATITIS VIRAL [None]
  - MONOCLONAL IMMUNOGLOBULIN PRESENT [None]
